FAERS Safety Report 12205292 (Version 1)
Quarter: 2016Q1

REPORT INFORMATION
  Report Type: Spontaneous
  Country: US (occurrence: US)
  Receive Date: 20160323
  Receipt Date: 20160323
  Transmission Date: 20160526
  Serious: No
  Sender: FDA-Public Use
  Company Number: US-MEDA-2016030045

PATIENT
  Sex: Female

DRUGS (1)
  1. CARISOPRODOL. [Suspect]
     Active Substance: CARISOPRODOL
     Indication: MYALGIA
     Route: 048
     Dates: start: 2014

REACTIONS (2)
  - Mouth ulceration [Recovered/Resolved]
  - Glossodynia [Not Recovered/Not Resolved]
